FAERS Safety Report 4611138-8 (Version None)
Quarter: 2005Q1

REPORT INFORMATION
  Report Type: 
  Country: None (occurrence: None)
  Receive Date: 20050317
  Receipt Date: 20050307
  Transmission Date: 20050727
  Serious: Yes (Death)
  Sender: FDA-Public Use
  Company Number: US-JNJFOC-20050206482

PATIENT
  Age: 35 Year
  Sex: Male
  Weight: 88.45 kg

DRUGS (1)
  1. DURAGESIC-100 [Suspect]
     Indication: DRUG USE FOR UNKNOWN INDICATION

REACTIONS (9)
  - ACCIDENTAL DEATH [None]
  - BRAIN OEDEMA [None]
  - CARDIOMEGALY [None]
  - CONGESTIVE CARDIOMYOPATHY [None]
  - DRUG TOXICITY [None]
  - HEPATIC CONGESTION [None]
  - PULMONARY CONGESTION [None]
  - SPLEEN CONGESTION [None]
  - TOXICOLOGIC TEST ABNORMAL [None]
